FAERS Safety Report 9988216 (Version 1)
Quarter: 2014Q1

REPORT INFORMATION
  Report Type: Spontaneous
  Country: US (occurrence: US)
  Receive Date: 20140309
  Receipt Date: 20140309
  Transmission Date: 20141002
  Serious: No
  Sender: FDA-Public Use
  Company Number: US-009507513-1402USA013428

PATIENT
  Age: 58 Year
  Sex: Male

DRUGS (1)
  1. FOSAMAX [Suspect]
     Indication: OSTEOPOROSIS
     Dosage: 70 MG, QW
     Route: 048
     Dates: start: 200902, end: 201202

REACTIONS (4)
  - Adverse event [Unknown]
  - Tooth abscess [Not Recovered/Not Resolved]
  - Dental caries [Not Recovered/Not Resolved]
  - Rheumatoid arthritis [Unknown]
